FAERS Safety Report 8702137 (Version 2)
Quarter: 2012Q4

REPORT INFORMATION
  Report Type: Spontaneous
  Country: CO (occurrence: None)
  Receive Date: 20120718
  Receipt Date: 20121016
  Transmission Date: 20130627
  Serious: Yes (Hospitalization, Other)
  Sender: FDA-Public Use
  Company Number: DSU-2012-05500

PATIENT
  Age: 67 Year
  Sex: Female

DRUGS (3)
  1. HYDROCHLOROTHIAZIDE\OLMESARTAN MEDOXOMIL [Suspect]
     Indication: BLOOD PRESSURE INCREASED
     Dosage: 20/12.5 MG (QD), PER ORAL
     Route: 048
     Dates: start: 201109
  2. EUGLUCON (GLIBENCLAMIDE) (GLIBENCLAMIDE) [Concomitant]
  3. ASPIRIN [Concomitant]

REACTIONS (5)
  - Cystitis [None]
  - Pain [None]
  - Urinary tract infection [None]
  - Hypertension [None]
  - Condition aggravated [None]
